FAERS Safety Report 24742313 (Version 2)
Quarter: 2025Q1

REPORT INFORMATION
  Report Type: Spontaneous
  Country: JP (occurrence: JP)
  Receive Date: 20241217
  Receipt Date: 20250106
  Transmission Date: 20250408
  Serious: Yes (Other)
  Sender: JOHNSON AND JOHNSON
  Company Number: JP-JNJFOC-20241245402

PATIENT
  Age: 34 Year
  Sex: Female

DRUGS (3)
  1. PALIPERIDONE PALMITATE [Suspect]
     Active Substance: PALIPERIDONE PALMITATE
     Indication: Product used for unknown indication
     Route: 030
     Dates: start: 20241202
  2. PALIPERIDONE PALMITATE [Suspect]
     Active Substance: PALIPERIDONE PALMITATE
  3. PALIPERIDONE PALMITATE [Suspect]
     Active Substance: PALIPERIDONE PALMITATE

REACTIONS (6)
  - Suicidal ideation [Unknown]
  - Musculoskeletal stiffness [Unknown]
  - Dysarthria [Unknown]
  - Irritability [Unknown]
  - Hostility [Unknown]
  - Thought blocking [Unknown]

NARRATIVE: CASE EVENT DATE: 20241201
